FAERS Safety Report 7532110-4 (Version None)
Quarter: 2011Q2

REPORT INFORMATION
  Report Type: 
  Country: None (occurrence: None)
  Receive Date: 20110608
  Receipt Date: 20110606
  Transmission Date: 20111010
  Serious: Yes (Other)
  Sender: FDA-Public Use
  Company Number: US-PFIZER INC-2011111262

PATIENT
  Sex: Male

DRUGS (1)
  1. CHANTIX [Suspect]
     Indication: SMOKING CESSATION THERAPY
     Dosage: UNK
     Dates: start: 20070101

REACTIONS (13)
  - PARANOIA [None]
  - ABNORMAL BEHAVIOUR [None]
  - ANXIETY [None]
  - SUICIDAL IDEATION [None]
  - HOSTILITY [None]
  - MOOD ALTERED [None]
  - PANIC REACTION [None]
  - ANGER [None]
  - DEPRESSION [None]
  - MANIA [None]
  - THINKING ABNORMAL [None]
  - CONFUSIONAL STATE [None]
  - AGGRESSION [None]
